FAERS Safety Report 5398705-1 (Version None)
Quarter: 2007Q3

REPORT INFORMATION
  Report Type: 
  Country: None (occurrence: None)
  Receive Date: 20070726
  Receipt Date: 20070417
  Transmission Date: 20080115
  Serious: No
  Sender: FDA-Public Use
  Company Number: US-AMGEN-KDL220180

PATIENT

DRUGS (12)
  1. EPOGEN [Suspect]
     Indication: ANAEMIA OF MALIGNANT DISEASE
     Dates: start: 20000101
  2. COREG [Concomitant]
  3. LASIX [Concomitant]
  4. COUMADIN [Concomitant]
  5. COZAAR [Concomitant]
  6. HYTRIN [Concomitant]
  7. TRIAZOLAM [Concomitant]
  8. FOLIC ACID [Concomitant]
  9. OMEGA 3 [Concomitant]
  10. ASCORBIC ACID [Concomitant]
  11. MAGNESIUM SULFATE [Concomitant]
  12. VITAMIN CAP [Concomitant]

REACTIONS (2)
  - FEELING ABNORMAL [None]
  - PERIPHERAL COLDNESS [None]
